FAERS Safety Report 13260946 (Version 1)
Quarter: 2017Q1

REPORT INFORMATION
  Report Type: Spontaneous
  Country: US (occurrence: US)
  Receive Date: 20170222
  Receipt Date: 20170222
  Transmission Date: 20170428
  Serious: No
  Sender: FDA-Public Use
  Company Number: US-ALLERGAN-1675828US

PATIENT
  Sex: Female

DRUGS (1)
  1. AVAGE [Suspect]
     Active Substance: TAZAROTENE
     Indication: SKIN DISORDER
     Dosage: UNK
     Dates: end: 201610

REACTIONS (1)
  - Erythema [Unknown]
